FAERS Safety Report 21612815 (Version 1)
Quarter: 2022Q4

REPORT INFORMATION
  Report Type: Spontaneous
  Country: US (occurrence: US)
  Receive Date: 20221118
  Receipt Date: 20221118
  Transmission Date: 20230112
  Serious: No
  Sender: FDA-Public Use
  Company Number: US-GLAXOSMITHKLINE-USCH2022AMR044432

PATIENT

DRUGS (3)
  1. ADVIL LIQUI-GELS [Suspect]
     Active Substance: IBUPROFEN
     Indication: Pain in extremity
     Dosage: UNK
  2. ADVIL LIQUI-GELS [Suspect]
     Active Substance: IBUPROFEN
     Indication: Arthralgia
  3. ADVIL LIQUI-GELS [Suspect]
     Active Substance: IBUPROFEN
     Indication: Back pain

REACTIONS (1)
  - Dyspepsia [Unknown]
